FAERS Safety Report 5652927-0 (Version None)
Quarter: 2008Q1

REPORT INFORMATION
  Report Type: 
  Country: None (occurrence: None)
  Receive Date: 20080306
  Receipt Date: 20080226
  Transmission Date: 20080703
  Serious: Yes (Death)
  Sender: FDA-Public Use
  Company Number: US-ROCHE-549825

PATIENT
  Age: 40 Year
  Sex: Female

DRUGS (2)
  1. XELODA [Suspect]
     Indication: COLON CANCER RECURRENT
     Dosage: THE PATIENT WAS TAKING XELODA 2000 MG TWICE A DAY BY MOUTH, 2 WEEKS ON AND 1 WEEK OFF.
     Route: 048
     Dates: start: 20080207, end: 20080211
  2. XELODA [Suspect]
     Dosage: THE PATIENT WAS RESTRATED AT THE SAME DOSE.
     Route: 048
     Dates: start: 20080216, end: 20080222

REACTIONS (3)
  - CHEST PAIN [None]
  - DEATH [None]
  - HEADACHE [None]
